FAERS Safety Report 5969247-7 (Version None)
Quarter: 2008Q4

REPORT INFORMATION
  Report Type: 
  Country: None (occurrence: None)
  Receive Date: 20081126
  Receipt Date: 20080821
  Transmission Date: 20090506
  Serious: No
  Sender: FDA-Public Use
  Company Number: US-ABBOTT-08P-163-0472012-00

PATIENT
  Sex: Female

DRUGS (11)
  1. SIMCOR [Suspect]
     Indication: DRUG USE FOR UNKNOWN INDICATION
     Dosage: 500/20 MG AT BEDTIME
     Route: 048
     Dates: start: 20080722
  2. SIMCOR [Suspect]
  3. LEVOTHYROXINE SODIUM [Concomitant]
     Indication: DRUG USE FOR UNKNOWN INDICATION
  4. ISOSORBIDE [Concomitant]
     Indication: DRUG USE FOR UNKNOWN INDICATION
  5. RALOXIFENE HCL [Concomitant]
     Indication: DRUG USE FOR UNKNOWN INDICATION
  6. VERAPAMIL [Concomitant]
     Indication: DRUG USE FOR UNKNOWN INDICATION
  7. WARFARIN SODIUM [Concomitant]
     Indication: DRUG USE FOR UNKNOWN INDICATION
  8. METOPROLOL TARTRATE [Concomitant]
     Indication: DRUG USE FOR UNKNOWN INDICATION
  9. PROPAFENONE HCL [Concomitant]
     Indication: DRUG USE FOR UNKNOWN INDICATION
  10. EXCLON PATCH [Concomitant]
     Indication: DRUG USE FOR UNKNOWN INDICATION
     Route: 061
  11. CHOLESTYRAMINE [Concomitant]
     Indication: DRUG USE FOR UNKNOWN INDICATION

REACTIONS (4)
  - FLUSHING [None]
  - HEADACHE [None]
  - PRURITUS [None]
  - SKIN BURNING SENSATION [None]
